FAERS Safety Report 12513534 (Version 3)
Quarter: 2017Q2

REPORT INFORMATION
  Report Type: Spontaneous
  Country: US (occurrence: US)
  Receive Date: 20160630
  Receipt Date: 20170412
  Transmission Date: 20170830
  Serious: Yes (Death, Hospitalization)
  Sender: FDA-Public Use
  Company Number: US-JNJFOC-20160524325

PATIENT
  Age: 74 Year
  Sex: Male

DRUGS (7)
  1. VIBRAMYCINE [Concomitant]
     Route: 048
     Dates: start: 20140908
  2. XARELTO [Suspect]
     Active Substance: RIVAROXABAN
     Indication: CEREBROVASCULAR ACCIDENT PROPHYLAXIS
     Route: 048
     Dates: start: 20140307, end: 20160123
  3. XARELTO [Suspect]
     Active Substance: RIVAROXABAN
     Indication: ATRIAL FIBRILLATION
     Route: 048
     Dates: start: 20140307, end: 20160123
  4. XARELTO [Suspect]
     Active Substance: RIVAROXABAN
     Indication: ATRIAL FIBRILLATION
     Route: 048
     Dates: start: 20140307, end: 20160123
  5. NYSTOP [Concomitant]
     Active Substance: NYSTATIN
     Route: 061
     Dates: start: 20141030
  6. NYSTOP [Concomitant]
     Active Substance: NYSTATIN
     Route: 061
     Dates: start: 20141106
  7. COZAAR [Concomitant]
     Active Substance: LOSARTAN POTASSIUM
     Route: 048
     Dates: start: 20140619

REACTIONS (2)
  - Gastrointestinal haemorrhage [Unknown]
  - Haematoma [Unknown]

NARRATIVE: CASE EVENT DATE: 20151230
